FAERS Safety Report 7252508-1 (Version None)
Quarter: 2011Q1

REPORT INFORMATION
  Report Type: 
  Country: None (occurrence: None)
  Receive Date: 20110129
  Receipt Date: 20100115
  Transmission Date: 20110831
  Serious: No
  Sender: FDA-Public Use
  Company Number: US-ABBOTT-10P-163-0619717-00

PATIENT
  Sex: Female
  Weight: 90.8 kg

DRUGS (1)
  1. HUMIRA [Suspect]
     Indication: PSORIATIC ARTHROPATHY
     Route: 058
     Dates: start: 20091218

REACTIONS (11)
  - BURNING SENSATION [None]
  - GASTROOESOPHAGEAL REFLUX DISEASE [None]
  - CHILLS [None]
  - ABDOMINAL DISCOMFORT [None]
  - CHEST PAIN [None]
  - CHEST DISCOMFORT [None]
  - HYPOPHAGIA [None]
  - FEELING OF BODY TEMPERATURE CHANGE [None]
  - ASTHENIA [None]
  - DISCOMFORT [None]
  - NAUSEA [None]
